FAERS Safety Report 9674751 (Version 1)
Quarter: 2013Q4

REPORT INFORMATION
  Report Type: Report from Study
  Country: CA (occurrence: CA)
  Receive Date: 20131107
  Receipt Date: 20131107
  Transmission Date: 20140711
  Serious: Yes (Hospitalization)
  Sender: FDA-Public Use
  Company Number: CA-JNJFOC-20131100385

PATIENT
  Age: 43 Year
  Sex: Female
  Weight: 68 kg

DRUGS (4)
  1. REMICADE [Suspect]
     Indication: CROHN^S DISEASE
     Dosage: LAST DOSE OF INFLIXIMAB INFUSION
     Route: 042
     Dates: start: 20130916
  2. REMICADE [Suspect]
     Indication: CROHN^S DISEASE
     Route: 042
     Dates: start: 20071113
  3. FLOVENT [Concomitant]
     Route: 065
  4. METHOTREXATE [Concomitant]
     Route: 065

REACTIONS (1)
  - Nephrolithiasis [Unknown]
